FAERS Safety Report 12096385 (Version 1)
Quarter: 2016Q1

REPORT INFORMATION
  Report Type: Spontaneous
  Country: US (occurrence: US)
  Receive Date: 20160220
  Receipt Date: 20160220
  Transmission Date: 20160526
  Serious: No
  Sender: FDA-Public Use
  Company Number: US-AUROBINDO-AUR-APU-2015-10218

PATIENT
  Age: 67 Year
  Sex: Male

DRUGS (1)
  1. SIMVASTATIN TABLETS USP 10 MG [Suspect]
     Active Substance: SIMVASTATIN
     Indication: BLOOD CHOLESTEROL DECREASED
     Dosage: 1 DF, DAILY
     Route: 065
     Dates: end: 20151106

REACTIONS (3)
  - Hypoaesthesia [Recovering/Resolving]
  - Muscle spasms [Recovering/Resolving]
  - Muscular weakness [Recovering/Resolving]
